FAERS Safety Report 11830017 (Version 2)
Quarter: 2015Q4

REPORT INFORMATION
  Report Type: Report from Study
  Country: FR (occurrence: FR)
  Receive Date: 20151213
  Receipt Date: 20151216
  Transmission Date: 20160305
  Serious: Yes (Hospitalization, Other)
  Sender: FDA-Public Use
  Company Number: PHHY2015FR159555

PATIENT
  Age: 30 Year
  Sex: Female
  Weight: 81 kg

DRUGS (1)
  1. TASIGNA [Suspect]
     Active Substance: NILOTINIB
     Indication: CHRONIC MYELOID LEUKAEMIA
     Dosage: 800 MG, QD
     Route: 048
     Dates: start: 20131021, end: 20150815

REACTIONS (7)
  - Hypometabolism [Unknown]
  - Haematoma [Recovered/Resolved]
  - Hypertension [Unknown]
  - Dyspnoea [Unknown]
  - Thymus disorder [Unknown]
  - Mediastinal mass [Unknown]
  - Pericardial effusion [Recovered/Resolved]

NARRATIVE: CASE EVENT DATE: 20150428
